FAERS Safety Report 17469632 (Version 2)
Quarter: 2020Q1

REPORT INFORMATION
  Report Type: Spontaneous
  Country: JP (occurrence: JP)
  Receive Date: 20200227
  Receipt Date: 20200304
  Transmission Date: 20200409
  Serious: Yes (Death, Hospitalization)
  Sender: FDA-Public Use
  Company Number: JP-PFIZER INC-2020076449

PATIENT
  Age: 60 Year
  Sex: Male

DRUGS (1)
  1. VYNDAQEL [Suspect]
     Active Substance: TAFAMIDIS MEGLUMINE
     Dosage: 80 MG, DAILY
     Route: 048
     Dates: start: 2019, end: 201912

REACTIONS (4)
  - Taste disorder [Unknown]
  - Feeding disorder [Unknown]
  - Septic shock [Fatal]
  - Atypical pneumonia [Unknown]

NARRATIVE: CASE EVENT DATE: 201912
